FAERS Safety Report 4639807-4 (Version None)
Quarter: 2005Q2

REPORT INFORMATION
  Report Type: 
  Country: None (occurrence: None)
  Receive Date: 20050420
  Receipt Date: 20050408
  Transmission Date: 20051028
  Serious: Yes (Other)
  Sender: FDA-Public Use
  Company Number: US-JNJFOC-20050402224

PATIENT
  Sex: Male

DRUGS (1)
  1. RETEVASE [Suspect]
     Indication: ACUTE MYOCARDIAL INFARCTION
     Route: 042

REACTIONS (2)
  - HEART RATE DECREASED [None]
  - RESPIRATORY ARREST [None]
